FAERS Safety Report 24680708 (Version 2)
Quarter: 2024Q4

REPORT INFORMATION
  Report Type: Spontaneous
  Country: KR (occurrence: KR)
  Receive Date: 20241129
  Receipt Date: 20241206
  Transmission Date: 20250115
  Serious: Yes (Other)
  Sender: NOVARTIS
  Company Number: KR-002147023-NVSC2024KR225665

PATIENT
  Age: 66 Year
  Sex: Female

DRUGS (3)
  1. ASCIMINIB [Suspect]
     Active Substance: ASCIMINIB
     Indication: Chronic myeloid leukaemia
     Dosage: UNK
     Route: 065
     Dates: start: 202408
  2. TASIGNA [Suspect]
     Active Substance: NILOTINIB
     Indication: Chronic myeloid leukaemia
     Dosage: UNK
     Route: 065
     Dates: start: 201606
  3. IMATINIB [Suspect]
     Active Substance: IMATINIB
     Indication: Chronic myeloid leukaemia
     Dosage: UNK
     Route: 065
     Dates: start: 202406

REACTIONS (7)
  - Aneurysm [Unknown]
  - Carotid artery stenosis [Unknown]
  - Oedema peripheral [Unknown]
  - Asthenia [Unknown]
  - Blood pressure systolic increased [Unknown]
  - Drug intolerance [Unknown]
  - Oedema [Unknown]

NARRATIVE: CASE EVENT DATE: 20221201
